FAERS Safety Report 8419970-X (Version None)
Quarter: 2012Q2

REPORT INFORMATION
  Report Type: 
  Country: None (occurrence: None)
  Receive Date: 20120607
  Receipt Date: 20120601
  Transmission Date: 20120825
  Serious: Yes (Hospitalization)
  Sender: FDA-Public Use
  Company Number: CA-ROCHE-1074725

PATIENT
  Sex: Male

DRUGS (8)
  1. ACETAMINOPHEN [Concomitant]
  2. VIAGRA [Concomitant]
  3. CRESTOR [Concomitant]
  4. VEMURAFENIB [Suspect]
     Indication: METASTATIC MALIGNANT MELANOMA
     Route: 048
     Dates: start: 20120501
  5. ALTACE [Concomitant]
  6. CARVEDILOL [Concomitant]
  7. METFORMIN HCL [Concomitant]
  8. TEVA-AMLODIPINE [Concomitant]

REACTIONS (4)
  - DEHYDRATION [None]
  - DYSGEUSIA [None]
  - FATIGUE [None]
  - DECREASED APPETITE [None]
